FAERS Safety Report 11596281 (Version 1)
Quarter: 2015Q4

REPORT INFORMATION
  Report Type: Spontaneous
  Country: FR (occurrence: FR)
  Receive Date: 20151006
  Receipt Date: 20151006
  Transmission Date: 20160304
  Serious: Yes (Hospitalization, Other)
  Sender: FDA-Public Use
  Company Number: FR-PFIZER INC-2015318187

PATIENT
  Age: 67 Year
  Sex: Female

DRUGS (14)
  1. BLEOMYCINE BELLON [Suspect]
     Active Substance: BLEOMYCIN SULFATE
     Indication: HODGKIN^S DISEASE
     Dosage: 10 MG/M2 (I.E. 14MG), CYCLIC
     Route: 042
     Dates: start: 20150508
  2. EMEND [Suspect]
     Active Substance: APREPITANT
     Indication: PROPHYLAXIS OF NAUSEA AND VOMITING
     Dosage: UNK
     Route: 048
     Dates: start: 20150508
  3. ADRIBLASTINE [Suspect]
     Active Substance: DOXORUBICIN
     Indication: HODGKIN^S DISEASE
     Dosage: 25 MG/M2 (36 MG), CYCLIC
     Route: 042
     Dates: start: 20150508
  4. DACARBAZINE MEDAC [Suspect]
     Active Substance: DACARBAZINE
     Indication: HODGKIN^S DISEASE
     Dosage: 375 MG/M2 (I.E. 540MG DAILY), CYCLIC
     Route: 042
     Dates: start: 20150508
  5. PARACETAMOL [Suspect]
     Active Substance: ACETAMINOPHEN
     Indication: PREMEDICATION
     Dosage: UNK
     Dates: start: 20150508
  6. VALACICLOVIR HYDROCHLORIDE [Concomitant]
     Active Substance: VALACYCLOVIR HYDROCHLORIDE
     Dosage: 500 MG, 2X/DAY
     Dates: start: 20150508
  7. PRIMPERAN [Suspect]
     Active Substance: METOCLOPRAMIDE HYDROCHLORIDE
     Indication: PROPHYLAXIS OF NAUSEA AND VOMITING
     Dosage: 10 MG, 3X/DAY IF NAUSEA
     Route: 048
     Dates: start: 20150508
  8. ONDANSETRON ACCORD [Suspect]
     Active Substance: ONDANSETRON
     Indication: PROPHYLAXIS OF NAUSEA AND VOMITING
     Dosage: UNK
     Route: 042
     Dates: start: 20150508
  9. PILOCARPINE EYE DROPS [Concomitant]
     Dosage: 1 DF, 3X/DAY
  10. METHYLPREDNISOLONE MYLAN /00049602/ [Suspect]
     Active Substance: METHYLPREDNISOLONE SODIUM SUCCINATE
     Indication: PREMEDICATION
     Dosage: UNK
     Route: 042
     Dates: start: 20150508
  11. MABTHERA [Suspect]
     Active Substance: RITUXIMAB
     Indication: HODGKIN^S DISEASE
     Dosage: 375 MG/M2 (I.E. 500MG DAILY), CYCLIC
     Route: 042
     Dates: start: 20150508
  12. VELBE [Suspect]
     Active Substance: VINBLASTINE SULFATE
     Indication: HODGKIN^S DISEASE
     Dosage: 6 MG/M2 (I.E. 8.6MG DAILY), CYCLIC
     Route: 042
     Dates: start: 20150508
  13. ZARZIO [Concomitant]
     Active Substance: FILGRASTIM
     Indication: AGRANULOCYTOSIS
     Dosage: 30 DAILY FOR 5 DAYS
     Dates: start: 20150610
  14. POLARAMINE [Suspect]
     Active Substance: DEXCHLORPHENIRAMINE MALEATE
     Indication: PREMEDICATION
     Dosage: 5 MG/ML
     Route: 042
     Dates: start: 20150508

REACTIONS (4)
  - Interstitial lung disease [Recovering/Resolving]
  - Pyrexia [Recovering/Resolving]
  - Condition aggravated [Recovering/Resolving]
  - Agranulocytosis [Unknown]
